FAERS Safety Report 8178315-3 (Version None)
Quarter: 2012Q1

REPORT INFORMATION
  Report Type: 
  Country: None (occurrence: None)
  Receive Date: 20120301
  Receipt Date: 20120227
  Transmission Date: 20120608
  Serious: Yes (Hospitalization, Other)
  Sender: FDA-Public Use
  Company Number: FR-PFIZER INC-2012050405

PATIENT
  Age: 91 Year
  Sex: Female

DRUGS (7)
  1. INDAPAMIDE [Suspect]
     Dosage: 1.5 MG (1 DF), 1X/DAY
     Route: 048
  2. EFFEXOR [Suspect]
     Dosage: 1 DF, 2X/DAY
     Route: 048
     Dates: end: 20110505
  3. IKOREL [Suspect]
     Dosage: 10 MG (1 DF), 1X/DAY
     Route: 048
  4. IMOVANE [Suspect]
     Dosage: 3.75 MG (0.5 DF), 1X/DAY
     Route: 048
  5. ASPIRIN [Concomitant]
     Dosage: 75 MG (1 DF), 1X/DAY
     Route: 048
  6. LEVOTHYROXINE SODIUM [Concomitant]
     Dosage: 1 DF, 1X/DAY
     Route: 048
  7. TRANSIPEG [Concomitant]
     Dosage: 5.9 G, 2X/DAY
     Route: 048

REACTIONS (3)
  - FALL [None]
  - HYPONATRAEMIA [None]
  - FEMORAL NECK FRACTURE [None]
